FAERS Safety Report 6896238-4 (Version None)
Quarter: 2010Q3

REPORT INFORMATION
  Report Type: 
  Country: None (occurrence: None)
  Receive Date: 20100802
  Receipt Date: 20100727
  Transmission Date: 20110219
  Serious: Yes (Other)
  Sender: FDA-Public Use
  Company Number: A0873031A

PATIENT
  Age: 30 Year
  Sex: Female

DRUGS (10)
  1. COMBIVIR [Suspect]
     Indication: HIV INFECTION
     Route: 048
  2. VIRAMUNE [Suspect]
     Indication: HIV INFECTION
     Route: 048
  3. AMPICILLIN [Concomitant]
  4. AZITHROMYCIN [Concomitant]
  5. BETAMETHASONE [Concomitant]
  6. FERROUS SULFATE [Concomitant]
  7. FOLIC ACID [Concomitant]
  8. HEXOPRENALINE SULPHATE [Concomitant]
  9. IBUPROFEN [Concomitant]
  10. OXYTOCIN [Concomitant]

REACTIONS (2)
  - DRUG EXPOSURE DURING PREGNANCY [None]
  - STILLBIRTH [None]
